FAERS Safety Report 12271518 (Version 2)
Quarter: 2016Q3

REPORT INFORMATION
  Report Type: Spontaneous
  Country: BR (occurrence: BR)
  Receive Date: 20160415
  Receipt Date: 20160726
  Transmission Date: 20161109
  Serious: Yes (Other)
  Sender: FDA-Public Use
  Company Number: BR-ABBVIE-16P-020-1606171-00

PATIENT
  Age: 38 Year
  Sex: Female
  Weight: 60 kg

DRUGS (4)
  1. KLARICID UD [Suspect]
     Active Substance: CLARITHROMYCIN
     Indication: CHEST DISCOMFORT
     Dosage: DAILY DOSE: 500 MG; AT NIGHT
     Route: 048
     Dates: start: 20160401
  2. PANTOPRAZOLE [Concomitant]
     Active Substance: PANTOPRAZOLE SODIUM
     Route: 048
  3. KLARICID UD [Suspect]
     Active Substance: CLARITHROMYCIN
     Indication: NOSOCOMIAL INFECTION
     Dosage: DAILY DOSE: 500 MILLIGRAM; AT 1 P.M.
     Route: 048
  4. PANTOPRAZOLE [Concomitant]
     Active Substance: PANTOPRAZOLE SODIUM
     Indication: PROPHYLAXIS AGAINST GASTROINTESTINAL ULCER

REACTIONS (7)
  - Tinnitus [Recovered/Resolved]
  - Flatulence [Recovered/Resolved]
  - Labyrinthitis [Recovered/Resolved]
  - Feeling abnormal [Recovered/Resolved]
  - Ageusia [Recovered/Resolved]
  - Heart rate increased [Recovered/Resolved]
  - Dry mouth [Recovered/Resolved]

NARRATIVE: CASE EVENT DATE: 201604
